FAERS Safety Report 6981553-6 (Version None)
Quarter: 2010Q3

REPORT INFORMATION
  Report Type: 
  Country: None (occurrence: None)
  Receive Date: 20100909
  Receipt Date: 20100902
  Transmission Date: 20110219
  Serious: No
  Sender: FDA-Public Use
  Company Number: A-CH2010-36977

PATIENT
  Age: 39 Year
  Sex: Female
  Weight: 46 kg

DRUGS (10)
  1. TRACLEER [Suspect]
     Indication: PULMONARY ARTERIAL HYPERTENSION
     Dosage: 125 MG, BID, ORAL
     Route: 048
     Dates: start: 20090519
  2. EPOPROSTENOL SODIUM [Concomitant]
  3. SILDENAFIL CITRATE [Concomitant]
  4. FUROSEMIDE (FUROSEMIDE SODIUM) [Concomitant]
  5. SPIRONOLACTONE [Concomitant]
  6. POTASSIUM CHLORIDE [Concomitant]
  7. FERROUS SULFATE TAB [Concomitant]
  8. SORAFENIB TOSILATE (SORAFENIB TOSILATE) [Concomitant]
  9. TRICHLORMETHIAZIDE [Concomitant]
  10. OXYGEN (OXYGEN) [Concomitant]

REACTIONS (1)
  - NO ADVERSE EVENT [None]
